FAERS Safety Report 7369518-6 (Version None)
Quarter: 2011Q1

REPORT INFORMATION
  Report Type: 
  Country: None (occurrence: None)
  Receive Date: 20110314
  Receipt Date: 20110303
  Transmission Date: 20110831
  Serious: Yes (Hospitalization)
  Sender: FDA-Public Use
  Company Number: 2010110037

PATIENT
  Age: 55 Year
  Sex: Male
  Weight: 56.6996 kg

DRUGS (6)
  1. MORPHINE [Concomitant]
  2. LOVENOX [Concomitant]
  3. ONSOLIS [Suspect]
     Indication: CANCER PAIN
     Dosage: TO TITRATED UP TO 4-200 MCG FILMS/DOSE (200 MCG, UP TO 4 TIMES DAILY), BU
     Route: 002
     Dates: start: 20101023
  4. PERCOCCET (OXYCODONE, ACETAMINOPHEN) [Concomitant]
  5. OXYCONTIN [Concomitant]
  6. CHEMOTHERAPY [Concomitant]

REACTIONS (9)
  - PANCYTOPENIA [None]
  - HYPERKALAEMIA [None]
  - HICCUPS [None]
  - DYSPNOEA [None]
  - BACK PAIN [None]
  - HYPOPHOSPHATAEMIA [None]
  - MALNUTRITION [None]
  - DEHYDRATION [None]
  - RENAL FAILURE ACUTE [None]
